FAERS Safety Report 9259588 (Version 3)
Quarter: 2014Q1

REPORT INFORMATION
  Report Type: Spontaneous
  Country: US (occurrence: US)
  Receive Date: 20130429
  Receipt Date: 20140102
  Transmission Date: 20141002
  Serious: Yes (Other)
  Sender: FDA-Public Use
  Company Number: US-ASTRAZENECA-2013SE27481

PATIENT
  Age: 46 Year
  Sex: Female
  Weight: 68 kg

DRUGS (37)
  1. NEXIUM [Suspect]
     Indication: GASTROOESOPHAGEAL REFLUX DISEASE
     Route: 048
     Dates: start: 20070314
  2. NEXIUM [Suspect]
     Indication: HIATUS HERNIA
     Route: 048
     Dates: start: 20070314
  3. NEXIUM [Suspect]
     Indication: GASTROOESOPHAGEAL REFLUX DISEASE
     Route: 048
     Dates: start: 20070314
  4. NEXIUM [Suspect]
     Indication: HIATUS HERNIA
     Route: 048
     Dates: start: 20070314
  5. NEXIUM [Suspect]
     Indication: GASTROOESOPHAGEAL REFLUX DISEASE
     Dosage: ONE TO TWO TIMES A DAY
     Route: 048
     Dates: start: 20080211
  6. NEXIUM [Suspect]
     Indication: HIATUS HERNIA
     Dosage: ONE TO TWO TIMES A DAY
     Route: 048
     Dates: start: 20080211
  7. NEXIUM [Suspect]
     Indication: GASTROOESOPHAGEAL REFLUX DISEASE
     Route: 048
     Dates: start: 20081031
  8. NEXIUM [Suspect]
     Indication: HIATUS HERNIA
     Route: 048
     Dates: start: 20081031
  9. TAGAMET [Concomitant]
  10. ESTROPIPATE [Concomitant]
  11. FIORCET [Concomitant]
     Indication: MIGRAINE
  12. VICODIN [Concomitant]
     Indication: PAIN
     Dosage: 10-500 MG ONE PO TID
     Route: 048
     Dates: start: 20120503, end: 20121217
  13. PLAVIX [Concomitant]
     Indication: CARDIAC DISORDER
     Dates: start: 20090902
  14. CRESTOR [Concomitant]
     Indication: BLOOD CHOLESTEROL INCREASED
     Route: 048
     Dates: start: 20120503, end: 20121116
  15. LYRICA [Concomitant]
     Indication: FIBROMYALGIA
     Dates: start: 20080508
  16. LYRICA [Concomitant]
     Indication: FIBROMYALGIA
     Dates: start: 20120503, end: 20121108
  17. CITALOPRAM [Concomitant]
     Indication: ANTIDEPRESSANT THERAPY
  18. BUTALBITAL [Concomitant]
     Indication: MIGRAINE
  19. VISINAR [Concomitant]
     Indication: INCONTINENCE
  20. ALPRAZOLAM [Concomitant]
     Dates: start: 20081103
  21. PREDNISONE [Concomitant]
     Dates: start: 20070807
  22. SIMVASTATIN [Concomitant]
     Dates: start: 20080212
  23. IMITREX [Concomitant]
     Dates: start: 20080312
  24. ABILIFY [Concomitant]
     Indication: BIPOLAR DISORDER
     Dates: start: 20080502
  25. SINGULAIR [Concomitant]
     Dates: start: 20080708
  26. SINGULAIR [Concomitant]
     Route: 048
     Dates: start: 20120503, end: 20130805
  27. FUROSEMIDE [Concomitant]
     Dates: start: 20080708
  28. CYCLOBENZAPRINE [Concomitant]
     Dates: start: 20080804
  29. DOXYCYCLINE HYCLATE [Concomitant]
     Dates: start: 20100714
  30. MORPHINE SULF [Concomitant]
     Dates: start: 20110730
  31. MORPHINE SULF [Concomitant]
     Route: 048
     Dates: start: 20120503, end: 20121019
  32. PROMETHAZINE [Concomitant]
     Dates: start: 20120906
  33. DIAZEPAM [Concomitant]
     Dates: start: 20060718
  34. ASPIRIN [Concomitant]
     Route: 048
     Dates: start: 20120503
  35. NITROGLYCERIN [Concomitant]
     Dosage: 0.4 MG EVERY FIVE MINUTES
     Route: 060
  36. ZOLPIDEM [Concomitant]
     Indication: SLEEP DISORDER
     Route: 048
     Dates: start: 20120709
  37. ZOLPIDEM [Concomitant]
     Indication: INSOMNIA
     Route: 048
     Dates: start: 20120709

REACTIONS (16)
  - Fractured coccyx [Unknown]
  - Fall [Unknown]
  - Osteoporosis [Not Recovered/Not Resolved]
  - Bone density decreased [Unknown]
  - Bone disorder [Unknown]
  - Multiple fractures [Unknown]
  - Back pain [Unknown]
  - Chronic obstructive pulmonary disease [Unknown]
  - Crohn^s disease [Unknown]
  - Diabetes mellitus [Unknown]
  - Anxiety disorder [Unknown]
  - Arthritis [Unknown]
  - Intervertebral disc degeneration [Unknown]
  - Osteoarthritis [Unknown]
  - Arthralgia [Unknown]
  - Depression [Unknown]
